FAERS Safety Report 5815454-3 (Version None)
Quarter: 2008Q3

REPORT INFORMATION
  Report Type: 
  Country: None (occurrence: None)
  Receive Date: 20080718
  Receipt Date: 20080710
  Transmission Date: 20090109
  Serious: Yes (Death, Other)
  Sender: FDA-Public Use
  Company Number: NZ-PFIZER INC-2008045404

PATIENT
  Sex: Male

DRUGS (3)
  1. LIPITOR [Suspect]
     Route: 048
  2. ACETYLSALICYLIC ACID SRT [Concomitant]
     Route: 048
  3. QUINAPRIL [Concomitant]
     Route: 048

REACTIONS (5)
  - BRAIN INJURY [None]
  - CARDIAC ARREST [None]
  - CORONARY ARTERY BYPASS [None]
  - SYNCOPE [None]
  - VENTRICULAR TACHYCARDIA [None]
